FAERS Safety Report 19303981 (Version 2)
Quarter: 2021Q3

REPORT INFORMATION
  Report Type: Spontaneous
  Country: US (occurrence: US)
  Receive Date: 20210525
  Receipt Date: 20210720
  Transmission Date: 20211014
  Serious: Yes (Hospitalization, Other)
  Sender: FDA-Public Use
  Company Number: US-GW PHARMA-202105USGW02479

PATIENT

DRUGS (3)
  1. EPIDIOLEX [Suspect]
     Active Substance: CANNABIDIOL
     Indication: EPILEPSY
     Dosage: 28.3 MG/KG/DAY, 300 MILLIGRAM, TID (SHIPPED ON 26 JUN 2020)
     Dates: start: 2020
  2. EPIDIOLEX [Suspect]
     Active Substance: CANNABIDIOL
     Dosage: UNK
     Route: 048
  3. TOBRAMYCIN. [Concomitant]
     Active Substance: TOBRAMYCIN
     Indication: PRODUCT USED FOR UNKNOWN INDICATION
     Dosage: UNK
     Route: 065
     Dates: start: 20210311

REACTIONS (4)
  - Tracheal disorder [Recovered/Resolved]
  - Aspiration [Recovered/Resolved]
  - Prescribed overdose [Unknown]
  - Off label use [Unknown]

NARRATIVE: CASE EVENT DATE: 20210507
